FAERS Safety Report 20326587 (Version 1)
Quarter: 2022Q1

REPORT INFORMATION
  Report Type: Spontaneous
  Country: NL (occurrence: NL)
  Receive Date: 20220112
  Receipt Date: 20220112
  Transmission Date: 20220423
  Serious: Yes (Other)
  Sender: FDA-Public Use
  Company Number: None

PATIENT
  Age: 61 Year
  Sex: Female
  Weight: 63 kg

DRUGS (1)
  1. ESCITALOPRAM [Suspect]
     Active Substance: ESCITALOPRAM OXALATE
     Indication: Anxiety disorder
     Dosage: FILM-COATED TABLET 10 MG, 1X PER DAY
     Dates: start: 20211208, end: 20211209

REACTIONS (6)
  - Electric shock sensation [Recovering/Resolving]
  - Nightmare [Recovering/Resolving]
  - Therapeutic response unexpected [Unknown]
  - Dizziness [Recovering/Resolving]
  - Fatigue [Recovering/Resolving]
  - Choking [Recovering/Resolving]

NARRATIVE: CASE EVENT DATE: 20211208
